FAERS Safety Report 4714587-2 (Version None)
Quarter: 2005Q3

REPORT INFORMATION
  Report Type: 
  Country: None (occurrence: None)
  Receive Date: 20050713
  Receipt Date: 20050713
  Transmission Date: 20060218
  Serious: Yes (Hospitalization)
  Sender: FDA-Public Use
  Company Number: None

PATIENT
  Age: 81 Year
  Sex: Male

DRUGS (2)
  1. DOCETAXEL; TAXOTERE; AVENTIS; ANTINEOPLASTICS; ;;40.0 MG/ML [Suspect]
     Indication: PROSTATE CANCER
     Dosage: INTRAVENOUS ; 150.0
     Route: 042
     Dates: start: 20050531, end: 20050607
  2. PREDNISONE [Concomitant]

REACTIONS (5)
  - HYPOTENSION [None]
  - NAUSEA [None]
  - ORAL INTAKE REDUCED [None]
  - RENAL FAILURE ACUTE [None]
  - VOMITING [None]
